FAERS Safety Report 10461176 (Version 1)
Quarter: 2014Q3

REPORT INFORMATION
  Report Type: Spontaneous
  Country: US (occurrence: FR)
  Receive Date: 20140918
  Receipt Date: 20140918
  Transmission Date: 20150326
  Serious: Yes (Hospitalization, Other)
  Sender: FDA-Public Use
  Company Number: 2014SP005345

PATIENT
  Age: 66 Year
  Sex: Male

DRUGS (17)
  1. VANCOMYCIN [Suspect]
     Active Substance: VANCOMYCIN
     Indication: PRODUCT USED FOR UNKNOWN INDICATION
     Route: 042
     Dates: start: 20140613, end: 20140623
  2. DECAN /07692601/ [Concomitant]
     Dates: end: 20140622
  3. PIPERACILLIN AND TAZOBACTAM [Suspect]
     Active Substance: PIPERACILLIN SODIUM\TAZOBACTAM SODIUM
     Indication: PRODUCT USED FOR UNKNOWN INDICATION
     Route: 042
     Dates: start: 20140613, end: 20140623
  4. IPRATROPIUM [Concomitant]
     Active Substance: IPRATROPIUM
     Dates: end: 20140708
  5. PERIKABIVEN [Concomitant]
     Dates: end: 20140622
  6. VITAMIN B6 [Concomitant]
     Active Substance: PYRIDOXINE HYDROCHLORIDE
  7. HEPARIN CALCIUM [Concomitant]
     Active Substance: HEPARIN CALCIUM
     Dates: start: 201406, end: 20140629
  8. VITAMIN B9 [Concomitant]
  9. ESOMEPRAZOLE [Concomitant]
     Active Substance: ESOMEPRAZOLE
     Dates: end: 20140708
  10. FUROSEMIDE. [Concomitant]
     Active Substance: FUROSEMIDE
     Dates: end: 20140622
  11. SPIRONOLACTONE. [Concomitant]
     Active Substance: SPIRONOLACTONE
     Dates: end: 20140622
  12. PARACETAMOL [Concomitant]
     Active Substance: ACETAMINOPHEN
  13. SALBUTAMOL [Concomitant]
     Active Substance: ALBUTEROL
     Dates: end: 20140708
  14. HIDROXIZIN [Concomitant]
     Dates: end: 20140708
  15. PHOSPHORUS [Concomitant]
     Active Substance: PHOSPHORUS
     Dates: end: 20140702
  16. VITAMIN B1 [Concomitant]
     Active Substance: THIAMINE HYDROCHLORIDE
  17. ENOXAPARIN [Concomitant]
     Active Substance: ENOXAPARIN
     Dates: end: 20140622

REACTIONS (5)
  - Tubulointerstitial nephritis [Recovered/Resolved]
  - Blood creatinine increased [Recovered/Resolved]
  - Systemic inflammatory response syndrome [Recovered/Resolved]
  - Renal failure acute [Recovered/Resolved]
  - Pyrexia [Recovered/Resolved]

NARRATIVE: CASE EVENT DATE: 20140623
